FAERS Safety Report 6258394-0 (Version None)
Quarter: 2009Q3

REPORT INFORMATION
  Report Type: 
  Country: None (occurrence: None)
  Receive Date: 20090702
  Receipt Date: 20090702
  Transmission Date: 20100115
  Serious: Yes (Life-Threatening)
  Sender: FDA-Public Use
  Company Number: None

PATIENT
  Age: 50 Year
  Sex: Female
  Weight: 86.1834 kg

DRUGS (1)
  1. GABITRIL [Suspect]
     Indication: NEURALGIA
     Dosage: 2 MG. ONCE DAILY PO
     Route: 048
     Dates: start: 20031010, end: 20031010

REACTIONS (1)
  - SUICIDAL BEHAVIOUR [None]
